FAERS Safety Report 7312457-7 (Version None)
Quarter: 2011Q1

REPORT INFORMATION
  Report Type: 
  Country: None (occurrence: None)
  Receive Date: 20110224
  Receipt Date: 20110214
  Transmission Date: 20110831
  Serious: Yes (Other)
  Sender: FDA-Public Use
  Company Number: PHHY2011CZ11836

PATIENT
  Sex: Male

DRUGS (1)
  1. ZOMETA [Suspect]
     Dosage: UNK
     Dates: start: 20100401

REACTIONS (1)
  - OSTEONECROSIS OF JAW [None]
